FAERS Safety Report 9252149 (Version 2)
Quarter: 2013Q2

REPORT INFORMATION
  Report Type: Spontaneous
  Country: DK (occurrence: CA)
  Receive Date: 20130424
  Receipt Date: 20130618
  Transmission Date: 20140414
  Serious: Yes (Other)
  Sender: FDA-Public Use
  Company Number: CA-FRI-1000044639

PATIENT
  Age: 47 Year
  Sex: Female
  Weight: 59 kg

DRUGS (1)
  1. CELEXA [Suspect]
     Indication: PHOBIA OF FLYING
     Dosage: 0.5 DF
     Route: 048
     Dates: start: 20121213, end: 20121214

REACTIONS (14)
  - Diarrhoea [Recovered/Resolved]
  - Eating disorder [Recovered/Resolved]
  - Heart rate increased [Recovered/Resolved]
  - Thinking abnormal [Recovered/Resolved]
  - Agitation [Recovered/Resolved]
  - Fear [Recovered/Resolved]
  - Nervousness [Recovered/Resolved]
  - Paraesthesia [Recovered/Resolved]
  - Feeling abnormal [Recovered/Resolved]
  - Tachyphrenia [Recovered/Resolved]
  - Malaise [Recovered/Resolved]
  - Anxiety [Recovered/Resolved]
  - Weight decreased [Recovered/Resolved]
  - Off label use [Unknown]
